FAERS Safety Report 15685793 (Version 2)
Quarter: 2019Q1

REPORT INFORMATION
  Report Type: Spontaneous
  Country: CA (occurrence: CA)
  Receive Date: 20181204
  Receipt Date: 20190128
  Transmission Date: 20190417
  Serious: Yes (Hospitalization, Other)
  Sender: FDA-Public Use
  Company Number: CA-SA-2018SA327058

PATIENT
  Age: 56 Year
  Sex: Female

DRUGS (2)
  1. FASTURTEC [Suspect]
     Active Substance: RASBURICASE
     Indication: TUMOUR LYSIS SYNDROME
     Dosage: 3 MG, 1X
     Route: 042
     Dates: start: 20171212, end: 20171212
  2. LIDOCAINE. [Suspect]
     Active Substance: LIDOCAINE
     Dosage: UNK UNK, 1X
     Dates: start: 20171212, end: 20171212

REACTIONS (3)
  - Oxygen saturation decreased [Recovered/Resolved]
  - Drug interaction [Recovered/Resolved]
  - Methaemoglobinaemia [Recovered/Resolved]

NARRATIVE: CASE EVENT DATE: 20171212
